FAERS Safety Report 9698232 (Version 2)
Quarter: 2014Q1

REPORT INFORMATION
  Report Type: Report from Study
  Country: US (occurrence: US)
  Receive Date: 20131120
  Receipt Date: 20140218
  Transmission Date: 20141002
  Serious: Yes (Other)
  Sender: FDA-Public Use
  Company Number: US-ROCHE-1303302

PATIENT
  Sex: Female
  Weight: 84.44 kg

DRUGS (8)
  1. AVASTIN [Suspect]
     Indication: PRODUCT USED FOR UNKNOWN INDICATION
     Route: 065
     Dates: start: 20130107, end: 20130107
  2. AVASTIN [Suspect]
     Route: 065
     Dates: start: 20130128, end: 20130128
  3. VITAMIN B12 [Concomitant]
  4. CELEXA (UNITED STATES) [Concomitant]
  5. NORCO [Concomitant]
  6. PROVENTIL [Concomitant]
  7. OMEGA 3 [Concomitant]
  8. OXYCONTIN [Concomitant]

REACTIONS (2)
  - Intestinal obstruction [Unknown]
  - Adverse drug reaction [Unknown]
